FAERS Safety Report 6584801-X (Version None)
Quarter: 2010Q1

REPORT INFORMATION
  Report Type: 
  Country: None (occurrence: None)
  Receive Date: 20100204
  Receipt Date: 20100122
  Transmission Date: 20100710
  Serious: Yes (Hospitalization, Other)
  Sender: FDA-Public Use
  Company Number: 230101J10BRA

PATIENT
  Sex: Male

DRUGS (1)
  1. REBIF [Suspect]
     Indication: DRUG EXPOSURE DURING PREGNANCY
     Dosage: 44 MCG, 3 IN 1 WEEKS, TRASPLACENTAL
     Route: 064
     Dates: start: 20071212, end: 20090316

REACTIONS (2)
  - MATERNAL DRUGS AFFECTING FOETUS [None]
  - PREMATURE BABY [None]
